FAERS Safety Report 8004157-5 (Version None)
Quarter: 2011Q4

REPORT INFORMATION
  Report Type: 
  Country: None (occurrence: None)
  Receive Date: 20111223
  Receipt Date: 20111215
  Transmission Date: 20120403
  Serious: Yes (Hospitalization)
  Sender: FDA-Public Use
  Company Number: US-BIOGENIDEC-2011BI038520

PATIENT
  Age: 67 Year
  Sex: Male

DRUGS (3)
  1. HIGH CHOLESTEROL MEDICINE (NOS) [Concomitant]
     Indication: BLOOD CHOLESTEROL INCREASED
  2. TYSABRI [Suspect]
     Indication: MULTIPLE SCLEROSIS
     Route: 042
     Dates: start: 20110301
  3. BLOOD PRESSURE MEDICINE (NOS) [Concomitant]
     Indication: HYPERTENSION

REACTIONS (3)
  - CYSTITIS [None]
  - GASTRIC ULCER HAEMORRHAGE [None]
  - DYSURIA [None]
